FAERS Safety Report 11069328 (Version 2)
Quarter: 2015Q3

REPORT INFORMATION
  Report Type: Spontaneous
  Country: US (occurrence: US)
  Receive Date: 20150427
  Receipt Date: 20150724
  Transmission Date: 20151125
  Serious: Yes (Hospitalization, Other)
  Sender: FDA-Public Use
  Company Number: US-JNJFOC-20150417066

PATIENT
  Age: 44 Year
  Sex: Female

DRUGS (3)
  1. TYLENOL PM EXTRA STRENGTH [Suspect]
     Active Substance: ACETAMINOPHEN\DIPHENHYDRAMINE HYDROCHLORIDE
     Indication: PRODUCT USED FOR UNKNOWN INDICATION
     Route: 048
     Dates: start: 201106, end: 201106
  2. OPIATES [Suspect]
     Active Substance: UNSPECIFIED INGREDIENT
     Indication: BACK PAIN
     Route: 065
  3. TYLENOL [Suspect]
     Active Substance: ACETAMINOPHEN
     Indication: PAIN
     Route: 065
     Dates: start: 201106

REACTIONS (15)
  - Hypotension [None]
  - Platelet count increased [None]
  - Overdose [Unknown]
  - Acidosis [None]
  - Mental status changes [None]
  - Lung infiltration [None]
  - Shock [None]
  - Coagulopathy [Unknown]
  - Renal failure [Unknown]
  - Multi-organ disorder [None]
  - Respiratory failure [Unknown]
  - Rhabdomyolysis [None]
  - Acute hepatic failure [Unknown]
  - Pulmonary congestion [None]
  - Atelectasis [None]

NARRATIVE: CASE EVENT DATE: 20110622
